FAERS Safety Report 4952148-0 (Version None)
Quarter: 2006Q1

REPORT INFORMATION
  Report Type: 
  Country: None (occurrence: None)
  Receive Date: 20060323
  Receipt Date: 20051122
  Transmission Date: 20060701
  Serious: Yes (Other)
  Sender: FDA-Public Use
  Company Number: PHFR2005GB03820

PATIENT
  Age: 37 Year
  Sex: Male

DRUGS (4)
  1. LANSOPRAZOLE [Concomitant]
     Indication: OESOPHAGITIS
     Dosage: 30 MG, QD
     Route: 065
     Dates: start: 20030301
  2. KETOCONAZOLE [Concomitant]
     Route: 061
  3. TEGRETOL [Suspect]
     Indication: EPILEPSY
     Dosage: 1000MG + 800MG/DAY
     Route: 048
     Dates: start: 20050701
  4. PRO-PLUS [Suspect]
     Route: 065

REACTIONS (3)
  - AGGRESSION [None]
  - ANGER [None]
  - DRUG INTERACTION [None]
